FAERS Safety Report 13142313 (Version 5)
Quarter: 2018Q4

REPORT INFORMATION
  Report Type: Report from Study
  Country: US (occurrence: US)
  Receive Date: 20170123
  Receipt Date: 20181101
  Transmission Date: 20190204
  Serious: Yes (Hospitalization, Other)
  Sender: FDA-Public Use
  Company Number: US-ACTELION-A-US2017-148763

PATIENT
  Age: 83 Year
  Sex: Male
  Weight: 86.17 kg

DRUGS (3)
  1. OPSUMIT [Suspect]
     Active Substance: MACITENTAN
     Indication: PULMONARY ARTERIAL HYPERTENSION
     Dosage: 10 MG, QD
     Route: 048
     Dates: start: 20131223
  2. AMLODIPINE [Concomitant]
     Active Substance: AMLODIPINE BESYLATE
  3. ADEMPAS [Concomitant]
     Active Substance: RIOCIGUAT

REACTIONS (12)
  - Dementia [Unknown]
  - Thalassaemia [Unknown]
  - Knee operation [Unknown]
  - Cellulitis [Recovering/Resolving]
  - Increased tendency to bruise [Unknown]
  - Neck surgery [Unknown]
  - Fall [Unknown]
  - Renal cancer [Unknown]
  - Anaemia [Unknown]
  - Fatigue [Unknown]
  - Spinal operation [Unknown]
  - Parkinson^s disease [Unknown]
